FAERS Safety Report 4434959-3 (Version None)
Quarter: 2004Q3

REPORT INFORMATION
  Report Type: 
  Country: None (occurrence: None)
  Receive Date: 20040726
  Receipt Date: 20040227
  Transmission Date: 20050211
  Serious: No
  Sender: FDA-Public Use
  Company Number: USA040360455

PATIENT
  Age: 69 Year
  Sex: Female

DRUGS (6)
  1. FORTEO [Suspect]
     Indication: OSTEOPOROSIS
     Dates: start: 20040101
  2. EVISTA [Concomitant]
  3. MULTI-VITAMIN [Concomitant]
  4. ASPIRIN [Concomitant]
  5. CALCIUM [Concomitant]
  6. FOSAMAX [Concomitant]

REACTIONS (4)
  - BLOOD CALCIUM INCREASED [None]
  - CARDIAC FLUTTER [None]
  - HEART RATE INCREASED [None]
  - HYPERTENSION [None]
